FAERS Safety Report 9112894 (Version 1)
Quarter: 2013Q1

REPORT INFORMATION
  Report Type: Spontaneous
  Country: US (occurrence: US)
  Receive Date: 20130211
  Receipt Date: 20130211
  Transmission Date: 20140127
  Serious: Yes (Hospitalization)
  Sender: FDA-Public Use
  Company Number: US-PFIZER INC-2013054730

PATIENT
  Age: 84 Year
  Sex: Male
  Weight: 72.56 kg

DRUGS (2)
  1. LYRICA [Suspect]
     Indication: SCIATICA
     Dosage: 75 MG, 2X/DAY
     Route: 048
     Dates: start: 20130109, end: 20130207
  2. DILANTIN [Concomitant]
     Indication: EPILEPSY
     Dosage: 2 DF, 2X/DAY
     Route: 048

REACTIONS (2)
  - Ankle fracture [Unknown]
  - Drug ineffective [Unknown]
